FAERS Safety Report 8814897 (Version 2)
Quarter: 2012Q4

REPORT INFORMATION
  Report Type: 
  Country: FR (occurrence: FR)
  Receive Date: 20120928
  Receipt Date: 20121012
  Transmission Date: 20130627
  Serious: Yes (Death, Hospitalization)
  Sender: FDA-Public Use
  Company Number: FR-MERCK-1209FRA011298

PATIENT
  Age: 89 Year
  Sex: Male

DRUGS (7)
  1. EZETROL [Suspect]
     Dosage: 1 DF, qd
     Route: 048
     Dates: end: 20120816
  2. TAHOR [Suspect]
     Dosage: UNK
     Route: 048
  3. CASODEX [Suspect]
     Indication: PROSTATE CANCER
     Dosage: UNK
     Route: 048
     Dates: end: 20120814
  4. PREVISCAN [Suspect]
     Dosage: 1 DF, qd
     Route: 048
  5. FUROSEMIDE [Suspect]
     Dosage: 20 mg, UNK
     Route: 048
  6. PROTHIADEN [Suspect]
     Dosage: 25 mg, qd
     Route: 048
     Dates: end: 20120816
  7. ZESTRIL [Suspect]
     Dosage: UNK
     Route: 048
     Dates: end: 20120816

REACTIONS (1)
  - Hepatitis [Fatal]
